FAERS Safety Report 5908046-9 (Version None)
Quarter: 2008Q4

REPORT INFORMATION
  Report Type: 
  Country: None (occurrence: None)
  Receive Date: 20081003
  Receipt Date: 20080925
  Transmission Date: 20090506
  Serious: Yes (Hospitalization)
  Sender: FDA-Public Use
  Company Number: PHHO1997FR02790

PATIENT
  Sex: Male
  Weight: 55 kg

DRUGS (8)
  1. NEORAL [Suspect]
     Route: 048
     Dates: start: 19960603
  2. SOLUPRED [Concomitant]
     Dosage: UNSPECIFIED
     Route: 065
  3. IMUREL [Concomitant]
     Dosage: UNSPECIFIED
     Route: 065
  4. DESURIC [Concomitant]
     Dosage: UNSPECIFIED
     Route: 065
  5. LASIX [Concomitant]
     Dosage: UNSPECIFIED
     Route: 065
  6. TARDYFERON [Concomitant]
     Dosage: UNSPECIFIED
     Route: 065
  7. LEXOMIL [Concomitant]
     Dosage: UNSPECIFIED
     Route: 065
  8. AMPHETAMINE SULFATE AND PHENOBARBITAL CAP [Concomitant]
     Dosage: UNSPECIFIED
     Route: 065

REACTIONS (7)
  - ANAEMIA [None]
  - CANDIDIASIS [None]
  - CHEST PAIN [None]
  - LABORATORY TEST ABNORMAL [None]
  - LEUKOPENIA [None]
  - OESOPHAGITIS [None]
  - THROMBOCYTOPENIA [None]
